FAERS Safety Report 9303043 (Version 1)
Quarter: 2013Q2

REPORT INFORMATION
  Report Type: Spontaneous
  Country: TR (occurrence: TR)
  Receive Date: 20130522
  Receipt Date: 20130522
  Transmission Date: 20140414
  Serious: Yes (Other)
  Sender: FDA-Public Use
  Company Number: TR-SANOFI-AVENTIS-2013SA049065

PATIENT
  Age: 52 Year
  Sex: Male
  Weight: 83 kg

DRUGS (2)
  1. TAXOTERE [Suspect]
     Indication: PRODUCT USED FOR UNKNOWN INDICATION
     Dosage: DOSE- 138 (UNITS NOT PROVIDED)
     Route: 042
     Dates: start: 20130404
  2. CISPLATIN [Concomitant]
     Dosage: DOSE: 138
     Route: 042
     Dates: start: 20130404

REACTIONS (3)
  - Dyspnoea [Unknown]
  - Chest pain [Unknown]
  - Cold sweat [Unknown]
